FAERS Safety Report 9564730 (Version 2)
Quarter: 2013Q3

REPORT INFORMATION
  Report Type: Report from Study
  Country: GB (occurrence: GB)
  Receive Date: 20130930
  Receipt Date: 20130930
  Transmission Date: 20140515
  Serious: Yes (Other)
  Sender: FDA-Public Use
  Company Number: GB-BAYER-2013-069639

PATIENT
  Age: 42 Year
  Sex: Male
  Weight: 95 kg

DRUGS (1)
  1. BETAFERON [Suspect]
     Indication: MULTIPLE SCLEROSIS
     Dosage: 8 MIU, QOD
     Route: 058
     Dates: start: 20130604

REACTIONS (19)
  - Muscular weakness [Recovered/Resolved]
  - Headache [None]
  - Migraine [Recovered/Resolved]
  - Influenza like illness [Recovered/Resolved]
  - Cough [Recovered/Resolved]
  - Rhinorrhoea [Recovered/Resolved]
  - Injection site bruising [Not Recovered/Not Resolved]
  - Injection site erythema [Not Recovered/Not Resolved]
  - Hypoaesthesia [Not Recovered/Not Resolved]
  - Incorrect product storage [Recovered/Resolved]
  - Hypoaesthesia [Recovering/Resolving]
  - Fatigue [Not Recovered/Not Resolved]
  - Hot flush [None]
  - Gait disturbance [None]
  - Fall [Recovering/Resolving]
  - Rib fracture [Recovering/Resolving]
  - Musculoskeletal chest pain [Recovering/Resolving]
  - Muscular weakness [None]
  - Drug dose omission [Recovered/Resolved]
